FAERS Safety Report 21260108 (Version 1)
Quarter: 2022Q3

REPORT INFORMATION
  Report Type: Spontaneous
  Country: FR (occurrence: FR)
  Receive Date: 20220826
  Receipt Date: 20220826
  Transmission Date: 20221026
  Serious: Yes (Life-Threatening, Hospitalization, Other)
  Sender: FDA-Public Use
  Company Number: None

PATIENT
  Age: 84 Year
  Sex: Female
  Weight: 84 kg

DRUGS (7)
  1. METFORMIN HYDROCHLORIDE [Suspect]
     Active Substance: METFORMIN HYDROCHLORIDE
     Indication: Diabetes mellitus
     Dosage: DRUG_DOSAGE_NUMBER : 500 DRUG_DOSAGE_UNIT : MG DRUG_INTERVAL_DOSAGE_UNIT_NUMBER : 8 DRUG_INTERVAL_DO
     Route: 048
     Dates: end: 20220727
  2. BISOPROLOL FUMARATE [Interacting]
     Active Substance: BISOPROLOL FUMARATE
     Indication: Hypertension
     Dosage: DRUG_DOSAGE_NUMBER : 5 DRUG_DOSAGE_UNIT : MG DRUG_INTERVAL_DOSAGE_UNIT_NUMBER : 1 DRUG_INTERVAL_DOSA
     Route: 048
     Dates: end: 20220727
  3. HYDROCHLOROTHIAZIDE\IRBESARTAN [Interacting]
     Active Substance: HYDROCHLOROTHIAZIDE\IRBESARTAN
     Indication: Hypertension
     Dosage: 300/25
     Route: 048
     Dates: end: 20220727
  4. FUROSEMIDE [Interacting]
     Active Substance: FUROSEMIDE
     Indication: Hypertension
     Dosage: DRUG_DOSAGE_NUMBER : 40 DRUG_DOSAGE_UNIT : MG DRUG_INTERVAL_DOSAGE_UNIT_NUMBER : 1 DRUG_INTERVAL_DOS
     Route: 048
     Dates: end: 20220727
  5. LERCANIDIPINE HYDROCHLORIDE [Interacting]
     Active Substance: LERCANIDIPINE HYDROCHLORIDE
     Indication: Hypertension
     Dosage: DRUG_DOSAGE_NUMBER : 20 DRUG_DOSAGE_UNIT : MG DRUG_INTERVAL_DOSAGE_UNIT_NUMBER : 1 DRUG_INTERVAL_DOS
     Route: 048
     Dates: end: 20220727
  6. ATORVASTATIN [Concomitant]
     Active Substance: ATORVASTATIN
     Indication: Dyslipidaemia
     Dosage: DRUG_DOSAGE_NUMBER : 10 DRUG_DOSAGE_UNIT : MG DRUG_INTERVAL_DOSAGE_UNIT_NUMBER : 1 DRUG_INTERVAL_DOS
     Route: 048
     Dates: end: 20220727
  7. KARDEGIC [Concomitant]
     Active Substance: ASPIRIN DL-LYSINE
     Indication: Prophylaxis
     Dosage: DRUG_DOSAGE_NUMBER : 160 DRUG_DOSAGE_UNIT : MG DRUG_INTERVAL_DOSAGE_UNIT_NUMBER : 1 DRUG_INTERVAL_DO
     Route: 048
     Dates: end: 20220727

REACTIONS (2)
  - Acute kidney injury [Recovering/Resolving]
  - Lactic acidosis [Recovering/Resolving]

NARRATIVE: CASE EVENT DATE: 20220726
